FAERS Safety Report 9352971 (Version 1)
Quarter: 2013Q2

REPORT INFORMATION
  Report Type: Spontaneous
  Country: US (occurrence: US)
  Receive Date: 20130618
  Receipt Date: 20130618
  Transmission Date: 20140414
  Serious: Yes (Hospitalization, Other)
  Sender: FDA-Public Use
  Company Number: US-JNJFOC-20130603278

PATIENT
  Age: 93 Year
  Sex: Male

DRUGS (3)
  1. ZYTIGA [Suspect]
     Indication: PROSTATE CANCER
     Route: 048
  2. TAMSULOSIN [Concomitant]
     Indication: PROSTATE CANCER
     Route: 065
  3. FINASTERIDE [Concomitant]
     Indication: PROSTATE CANCER
     Route: 065

REACTIONS (3)
  - Hospitalisation [Recovered/Resolved]
  - Myocardial ischaemia [Unknown]
  - Cardiac failure congestive [Unknown]
